FAERS Safety Report 8795973 (Version 2)
Quarter: 2012Q4

REPORT INFORMATION
  Report Type: 
  Country: US (occurrence: US)
  Receive Date: 20120919
  Receipt Date: 20121009
  Transmission Date: 20130627
  Serious: Yes (Other)
  Sender: FDA-Public Use
  Company Number: US-UCBSA-066144

PATIENT
  Age: 21 Year
  Sex: Female
  Weight: 53.5 kg

DRUGS (1)
  1. CIMZIA [Suspect]
     Indication: CROHN^S DISEASE
     Route: 058
     Dates: start: 20110816

REACTIONS (2)
  - Psoriasis [Recovering/Resolving]
  - Rash pruritic [Recovered/Resolved]
